FAERS Safety Report 7646125-9 (Version None)
Quarter: 2011Q3

REPORT INFORMATION
  Report Type: 
  Country: None (occurrence: None)
  Receive Date: 20110801
  Receipt Date: 20110726
  Transmission Date: 20111222
  Serious: No
  Sender: FDA-Public Use
  Company Number: US-BIOGENIDEC-2011BI016626

PATIENT
  Age: 57 Year
  Sex: Male

DRUGS (2)
  1. TYSABRI [Suspect]
     Indication: MULTIPLE SCLEROSIS
     Route: 042
     Dates: start: 20110303, end: 20110504
  2. BENADRYL [Concomitant]
     Indication: PREMEDICATION
     Route: 042
     Dates: start: 20110401

REACTIONS (6)
  - SWELLING FACE [None]
  - PRURITUS GENERALISED [None]
  - RASH [None]
  - PRURITUS [None]
  - LIP SWELLING [None]
  - HYPERHIDROSIS [None]
